FAERS Safety Report 24528113 (Version 1)
Quarter: 2024Q4

REPORT INFORMATION
  Report Type: Spontaneous
  Country: CN (occurrence: CN)
  Receive Date: 20241021
  Receipt Date: 20241021
  Transmission Date: 20250115
  Serious: Yes (Other)
  Sender: NOVARTIS
  Company Number: CN-002147023-NVSC2024CN204058

PATIENT
  Sex: Male

DRUGS (2)
  1. TRAMETINIB [Suspect]
     Active Substance: TRAMETINIB
     Indication: Lung neoplasm malignant
     Dosage: UNK
     Route: 048
  2. DABRAFENIB [Suspect]
     Active Substance: DABRAFENIB
     Indication: Lung neoplasm malignant
     Dosage: UNK
     Route: 048

REACTIONS (1)
  - Metastases to meninges [Unknown]
